FAERS Safety Report 17033593 (Version 4)
Quarter: 2020Q2

REPORT INFORMATION
  Report Type: Report from Study
  Country: HR (occurrence: HR)
  Receive Date: 20191114
  Receipt Date: 20200609
  Transmission Date: 20200713
  Serious: Yes (Hospitalization, Disabling)
  Sender: FDA-Public Use
  Company Number: HR-EXELIXIS-XL18419024523

PATIENT
  Age: 32 Year
  Sex: Male
  Weight: 70 kg

DRUGS (9)
  1. BLINDED XL184 [Suspect]
     Active Substance: CABOZANTINIB
     Indication: MEDULLARY THYROID CANCER
     Dosage: 140 OR 60 MG, QD
     Route: 048
     Dates: start: 20190114
  2. BLINDED XL184 [Suspect]
     Active Substance: CABOZANTINIB
     Dosage: 140 OR 60 MG QD
     Route: 048
     Dates: start: 20190815
  3. LEVOTHYROXIN [Concomitant]
     Active Substance: LEVOTHYROXINE
  4. LOPERAMID [Concomitant]
     Active Substance: LOPERAMIDE
  5. BLINDED XL184 [Suspect]
     Active Substance: CABOZANTINIB
     Dosage: 140 OR 60 MG QD
     Route: 048
     Dates: start: 20190815
  6. COLECALCIFEROL [Concomitant]
     Active Substance: CHOLECALCIFEROL
  7. BLINDED XL184 [Suspect]
     Active Substance: CABOZANTINIB
     Indication: MEDULLARY THYROID CANCER
     Dosage: 140 OR 60 MG, QD
     Route: 048
     Dates: start: 20190114
  8. HIDROCORTISON [Concomitant]
     Active Substance: HYDROCORTISONE
  9. FLUDROCORTISONE [Concomitant]
     Active Substance: FLUDROCORTISONE

REACTIONS (1)
  - Ischaemic skin ulcer [Recovered/Resolved]

NARRATIVE: CASE EVENT DATE: 20190315
